FAERS Safety Report 25367588 (Version 1)
Quarter: 2025Q2

REPORT INFORMATION
  Report Type: Spontaneous
  Country: FR (occurrence: FR)
  Receive Date: 20250528
  Receipt Date: 20250528
  Transmission Date: 20250716
  Serious: Yes (Other)
  Sender: MYLAN
  Company Number: FR-MYLANLABS-2025M1041954

PATIENT
  Age: 56 Year
  Sex: Female

DRUGS (2)
  1. PAROXETINE [Interacting]
     Active Substance: PAROXETINE
     Indication: Product used for unknown indication
     Dosage: 0.5 DOSAGE FORM, QD (HALF A TABLET A DAY)
     Dates: end: 20250508
  2. PROGESTERONE [Interacting]
     Active Substance: PROGESTERONE
     Indication: Hormone replacement therapy

REACTIONS (3)
  - Postmenopausal haemorrhage [Unknown]
  - Breast pain [Unknown]
  - Drug interaction [Unknown]
